FAERS Safety Report 10258493 (Version 1)
Quarter: 2014Q2

REPORT INFORMATION
  Report Type: Report from Study
  Country: DE (occurrence: DE)
  Receive Date: 20140625
  Receipt Date: 20140625
  Transmission Date: 20141212
  Serious: Yes (Life-Threatening, Hospitalization, Other)
  Sender: FDA-Public Use
  Company Number: DE-ASTELLAS-2014US007290

PATIENT
  Age: 78 Year
  Sex: Female

DRUGS (1)
  1. ERLOTINIB [Suspect]
     Indication: BRONCHIAL CARCINOMA
     Route: 048
     Dates: start: 20120329, end: 20120731

REACTIONS (2)
  - Haemoglobin abnormal [Unknown]
  - Upper gastrointestinal haemorrhage [Recovered/Resolved]
